FAERS Safety Report 4878873-8 (Version None)
Quarter: 2005Q4

REPORT INFORMATION
  Report Type: 
  Country: None (occurrence: None)
  Receive Date: 20051209
  Receipt Date: 20050527
  Transmission Date: 20060501
  Serious: Yes (Other)
  Sender: FDA-Public Use
  Company Number: USA-2005-0020449

PATIENT
  Age: 30 Year
  Sex: Female

DRUGS (3)
  1. OXYCODONE HCL [Suspect]
     Dosage: SEE TEXT
  2. LORTAB [Concomitant]
  3. VICODIN [Concomitant]

REACTIONS (1)
  - POLYSUBSTANCE ABUSE [None]
